FAERS Safety Report 22156527 (Version 1)
Quarter: 2023Q1

REPORT INFORMATION
  Report Type: Spontaneous
  Country: US (occurrence: None)
  Receive Date: 20230330
  Receipt Date: 20230330
  Transmission Date: 20230417
  Serious: No
  Sender: FDA-Public Use
  Company Number: None

PATIENT
  Age: 68 Year
  Sex: Male
  Weight: 98.55 kg

DRUGS (1)
  1. LOSARTAN POTASSIUM [Suspect]
     Active Substance: LOSARTAN POTASSIUM
     Indication: Hypertension
     Dosage: 1 TABLET DAILY ORAL
     Route: 048
     Dates: start: 20230215, end: 20230328

REACTIONS (5)
  - Headache [None]
  - Dizziness [None]
  - Confusional state [None]
  - Disturbance in attention [None]
  - Feeling abnormal [None]

NARRATIVE: CASE EVENT DATE: 20230328
